FAERS Safety Report 6304686-6 (Version None)
Quarter: 2009Q3

REPORT INFORMATION
  Report Type: 
  Country: None (occurrence: None)
  Receive Date: 20090806
  Receipt Date: 20090731
  Transmission Date: 20100115
  Serious: Yes (Disabling, Other)
  Sender: FDA-Public Use
  Company Number: TRP_06341_2009

PATIENT
  Age: 51 Year
  Sex: Female

DRUGS (1)
  1. RIBAPAK (NOT SPECIFIED) [Suspect]
     Indication: HEPATITIS C
     Dosage: DF
     Dates: start: 20081003, end: 20090424

REACTIONS (8)
  - CRYING [None]
  - DEPRESSED MOOD [None]
  - FATIGUE [None]
  - HYPERSOMNIA [None]
  - HYPERTHYROIDISM [None]
  - HYPOTHYROIDISM [None]
  - OEDEMA [None]
  - SWELLING [None]
